FAERS Safety Report 8419086-2 (Version None)
Quarter: 2012Q2

REPORT INFORMATION
  Report Type: 
  Country: None (occurrence: None)
  Receive Date: 20120607
  Receipt Date: 20120605
  Transmission Date: 20120825
  Serious: Yes (Death, Hospitalization)
  Sender: FDA-Public Use
  Company Number: PHEH2012US011039

PATIENT
  Sex: Female

DRUGS (2)
  1. RECLAST [Suspect]
     Route: 042
     Dates: start: 20100609
  2. RECLAST [Suspect]
     Route: 042
     Dates: start: 20110609

REACTIONS (5)
  - UPPER RESPIRATORY TRACT INFECTION [None]
  - RESPIRATORY FAILURE [None]
  - CHRONIC OBSTRUCTIVE PULMONARY DISEASE [None]
  - LUNG DISORDER [None]
  - RESPIRATORY SYNCYTIAL VIRUS BRONCHIOLITIS [None]
